FAERS Safety Report 21668708 (Version 1)
Quarter: 2022Q4

REPORT INFORMATION
  Report Type: Spontaneous
  Country: US (occurrence: US)
  Receive Date: 20221201
  Receipt Date: 20221201
  Transmission Date: 20230113
  Serious: No
  Sender: FDA-Public Use
  Company Number: US-SA-SAC20221130001170

PATIENT
  Age: 57 Year
  Sex: Female

DRUGS (2)
  1. DUPIXENT [Suspect]
     Active Substance: DUPILUMAB
     Indication: Neurodermatitis
     Dosage: 300 MG EVERY 2 WEEKS
     Route: 058
     Dates: start: 20220908
  2. DUPIXENT [Suspect]
     Active Substance: DUPILUMAB
     Indication: Neurodermatitis

REACTIONS (7)
  - Pain in extremity [Unknown]
  - Dry mouth [Unknown]
  - Dysphagia [Unknown]
  - Feeling jittery [Unknown]
  - Ocular hyperaemia [Unknown]
  - Arthralgia [Unknown]
  - Eye pruritus [Unknown]
